FAERS Safety Report 7801049-9 (Version None)
Quarter: 2011Q4

REPORT INFORMATION
  Report Type: 
  Country: None (occurrence: None)
  Receive Date: 20111007
  Receipt Date: 20110928
  Transmission Date: 20120403
  Serious: No
  Sender: FDA-Public Use
  Company Number: US-BIOGENIDEC-2011BI028331

PATIENT
  Age: 36 Year
  Sex: Female

DRUGS (2)
  1. ANTI CONVULSION MEDICATION (NOS) [Concomitant]
     Indication: CONVULSION
  2. TYSABRI [Suspect]
     Indication: MULTIPLE SCLEROSIS
     Route: 042
     Dates: start: 20110512, end: 20110708

REACTIONS (9)
  - INFLUENZA LIKE ILLNESS [None]
  - MOOD SWINGS [None]
  - MALAISE [None]
  - MUSCLE SPASMS [None]
  - PAIN [None]
  - SINUSITIS [None]
  - FATIGUE [None]
  - EYE PAIN [None]
  - VISION BLURRED [None]
